FAERS Safety Report 10030904 (Version 1)
Quarter: 2014Q1

REPORT INFORMATION
  Report Type: Spontaneous
  Country: US (occurrence: US)
  Receive Date: 20140323
  Receipt Date: 20140323
  Transmission Date: 20141002
  Serious: No
  Sender: FDA-Public Use
  Company Number: US-ALLERGAN-1316509US

PATIENT
  Sex: Female

DRUGS (3)
  1. LATISSE 0.03% [Suspect]
     Indication: GROWTH OF EYELASHES
     Dosage: UNK UNK, QHS
     Dates: start: 20131015, end: 20131016
  2. ATORVASTATIN [Concomitant]
     Indication: HYPERTENSION
     Dosage: 5 MG, QD
     Route: 048
  3. VITAMINS                           /00067501/ [Concomitant]
     Indication: SUPPLEMENTATION THERAPY
     Dosage: UNK

REACTIONS (5)
  - Eyelid oedema [Unknown]
  - Erythema of eyelid [Unknown]
  - Eyelid pain [Unknown]
  - Eyelids pruritus [Unknown]
  - Eyelid oedema [Unknown]
